FAERS Safety Report 7449580-2 (Version None)
Quarter: 2011Q2

REPORT INFORMATION
  Report Type: 
  Country: None (occurrence: None)
  Receive Date: 20110502
  Receipt Date: 20110426
  Transmission Date: 20111010
  Serious: Yes (Death, Other)
  Sender: FDA-Public Use
  Company Number: JP-BAYER-201014181BYL

PATIENT
  Age: 73 Year
  Sex: Male
  Weight: 68 kg

DRUGS (17)
  1. HUMALOG [Concomitant]
     Dosage: 22 U (DAILY DOSE), , INTRAVENOUS
     Route: 042
     Dates: start: 20070101
  2. LACTULOSE [Concomitant]
     Dosage: DAILY DOSE 60 ML
     Route: 048
     Dates: start: 20101101, end: 20101207
  3. AVAPRO [Concomitant]
     Dosage: DAILY DOSE 100 MG
     Route: 048
     Dates: start: 20110105
  4. URSO 250 [Concomitant]
     Dosage: 300 MG (DAILY DOSE), , ORAL
     Route: 048
     Dates: start: 20070101
  5. CALBLOCK [Concomitant]
     Dosage: 16 MG (DAILY DOSE), , ORAL
     Route: 048
     Dates: start: 20070101
  6. NEXAVAR [Suspect]
     Indication: HEPATIC NEOPLASM MALIGNANT
     Dosage: 400 MG (DAILY DOSE), , ORAL
     Route: 048
     Dates: start: 20100719, end: 20110313
  7. NU-LOTAN [Concomitant]
     Dosage: 25 MG (DAILY DOSE), , ORAL
     Route: 048
     Dates: start: 20100301
  8. MIYA BM [Concomitant]
     Indication: DIARRHOEA
     Dosage: 3 G (DAILY DOSE), , ORAL
     Route: 048
     Dates: start: 20100701
  9. BETAMETHASONE [Concomitant]
     Dosage: DAILY DOSE 2 MG
     Route: 052
     Dates: start: 20101112, end: 20101114
  10. LORFENAMIN [Concomitant]
     Dosage: 60 MG, PRN
     Route: 048
     Dates: start: 20101120
  11. PARIET [Concomitant]
     Dosage: 10 MG (DAILY DOSE), , ORAL
     Route: 048
     Dates: start: 20070101
  12. LASIX [Concomitant]
     Dosage: 20 MG (DAILY DOSE), , UNKNOWN
     Route: 065
     Dates: start: 20091028, end: 20110125
  13. LASIX [Concomitant]
     Dosage: 60 MG (DAILY DOSE), , UNKNOWN
     Route: 065
     Dates: start: 20110126
  14. AMINOLEBAN EN [Concomitant]
     Dosage: DAILY DOSE 50 G
     Route: 048
     Dates: start: 20110126
  15. PROMAC [POLAPREZINC] [Concomitant]
     Dosage: 150 MG (DAILY DOSE), , ORAL
     Route: 048
     Dates: start: 20090101
  16. LANTUS [Concomitant]
     Dosage: 3 U (DAILY DOSE), , INTRAVENOUS
     Route: 042
     Dates: start: 20090101
  17. CARBOCAIN [Concomitant]
     Dosage: DAILY DOSE 5 ML
     Route: 052
     Dates: start: 20101112, end: 20101114

REACTIONS (7)
  - TOXIC ENCEPHALOPATHY [None]
  - ASCITES [None]
  - BLOOD URIC ACID INCREASED [None]
  - DIARRHOEA [None]
  - PALMAR-PLANTAR ERYTHRODYSAESTHESIA SYNDROME [None]
  - FATIGUE [None]
  - GENERAL PHYSICAL HEALTH DETERIORATION [None]
